FAERS Safety Report 10221723 (Version 1)
Quarter: 2014Q2

REPORT INFORMATION
  Report Type: Spontaneous
  Country: US (occurrence: US)
  Receive Date: 20140606
  Receipt Date: 20140606
  Transmission Date: 20141212
  Serious: Yes (Congenital Anomaly)
  Sender: FDA-Public Use
  Company Number: US-JNJFOC-20140600634

PATIENT
  Sex: 0

DRUGS (6)
  1. XARELTO [Suspect]
     Indication: PULMONARY EMBOLISM
     Route: 064
     Dates: start: 20131114, end: 201403
  2. XARELTO [Suspect]
     Indication: DEEP VEIN THROMBOSIS
     Route: 064
     Dates: start: 20131114, end: 201403
  3. LOVENOX [Suspect]
     Indication: PRODUCT USED FOR UNKNOWN INDICATION
     Route: 064
  4. ASPIRIN [Suspect]
     Indication: DEEP VEIN THROMBOSIS
     Route: 064
  5. CLONAZEPAM [Suspect]
     Indication: ANXIETY
     Route: 064
  6. HYDROCODONE [Suspect]
     Indication: PAIN
     Dosage: 5/500 MG
     Route: 064

REACTIONS (2)
  - Foetal growth restriction [Unknown]
  - Foetal exposure during pregnancy [Unknown]
